FAERS Safety Report 8510782-5 (Version None)
Quarter: 2012Q3

REPORT INFORMATION
  Report Type: 
  Country: None (occurrence: None)
  Receive Date: 20120716
  Receipt Date: 20120709
  Transmission Date: 20120928
  Serious: Yes (Other)
  Sender: FDA-Public Use
  Company Number: US-PFIZER INC-2012165022

PATIENT
  Sex: Male
  Weight: 76 kg

DRUGS (4)
  1. HUMALOG [Concomitant]
     Indication: DIABETES MELLITUS
     Dosage: 10 MG, DAILY
  2. PROTONIX [Suspect]
     Indication: DYSPEPSIA
  3. PROTONIX [Suspect]
     Indication: HYPERCHLORHYDRIA
     Dosage: 40 MG, DAILY
     Dates: start: 20100101
  4. LASIX [Concomitant]
     Dosage: 20 MG, DAILY

REACTIONS (3)
  - MALAISE [None]
  - PRURITUS [None]
  - JAUNDICE [None]
